FAERS Safety Report 16632282 (Version 1)
Quarter: 2019Q3

REPORT INFORMATION
  Report Type: Spontaneous
  Country: US (occurrence: US)
  Receive Date: 20190725
  Receipt Date: 20190725
  Transmission Date: 20191004
  Serious: Yes (Life-Threatening, Hospitalization, Other)
  Sender: FDA-Public Use
  Company Number: US-DRREDDYS-USA/USA/19/0112368

PATIENT
  Age: 72 Year
  Sex: Female

DRUGS (8)
  1. ZIPRASIDONE. [Suspect]
     Active Substance: ZIPRASIDONE
     Indication: PRODUCT USED FOR UNKNOWN INDICATION
     Route: 065
     Dates: start: 20140309
  2. PREDNISOLONE. [Suspect]
     Active Substance: PREDNISOLONE
     Indication: SEPSIS
  3. LURASIDONE [Concomitant]
     Active Substance: LURASIDONE
     Dates: start: 20140215
  4. LEVOFLOXACIN TABLETS [Suspect]
     Active Substance: LEVOFLOXACIN
     Indication: PNEUMONIA
     Route: 048
  5. PREDNISOLONE. [Suspect]
     Active Substance: PREDNISOLONE
     Indication: PNEUMONIA
  6. LURASIDONE [Concomitant]
     Active Substance: LURASIDONE
     Indication: SCHIZOAFFECTIVE DISORDER
     Dates: start: 20140127
  7. LURASIDONE [Concomitant]
     Active Substance: LURASIDONE
     Dates: start: 20140205
  8. LEVOFLOXACIN TABLETS [Suspect]
     Active Substance: LEVOFLOXACIN
     Indication: SEPSIS

REACTIONS (5)
  - Confusional state [Unknown]
  - Sepsis [Not Recovered/Not Resolved]
  - Condition aggravated [Not Recovered/Not Resolved]
  - Tremor [Recovered/Resolved]
  - Pneumonia [Not Recovered/Not Resolved]
